FAERS Safety Report 9688783 (Version 2)
Quarter: 2013Q4

REPORT INFORMATION
  Report Type: Spontaneous
  Country: US (occurrence: US)
  Receive Date: 20131114
  Receipt Date: 20131212
  Transmission Date: 20140711
  Serious: Yes (Hospitalization)
  Sender: FDA-Public Use
  Company Number: US-ELI_LILLY_AND_COMPANY-US201311001142

PATIENT
  Sex: Male

DRUGS (2)
  1. HUMALOG 25% LISPRO, 75% NPL [Suspect]
     Indication: TYPE 2 DIABETES MELLITUS
     Dosage: 90 U, BID
     Route: 065
  2. HUMALOG LISPRO [Suspect]
     Indication: TYPE 2 DIABETES MELLITUS
     Dosage: UNK, PRN
     Route: 065

REACTIONS (7)
  - Osteomyelitis [Recovered/Resolved]
  - Wound [Unknown]
  - Bone fragmentation [Unknown]
  - Blood glucose increased [Unknown]
  - Fall [Unknown]
  - Blister [Unknown]
  - Incorrect product storage [Unknown]
